FAERS Safety Report 5505613-1 (Version None)
Quarter: 2007Q4

REPORT INFORMATION
  Report Type: 
  Country: None (occurrence: None)
  Receive Date: 20071102
  Receipt Date: 20070227
  Transmission Date: 20080405
  Serious: Yes (Death, Hospitalization)
  Sender: FDA-Public Use
  Company Number: US-ASTRAZENECA-2006UW21159

PATIENT
  Age: 25360 Day
  Sex: Female
  Weight: 82 kg

DRUGS (22)
  1. SEROQUEL [Suspect]
     Indication: DEMENTIA
     Route: 048
     Dates: start: 20030613, end: 20030613
  2. SEROQUEL [Suspect]
     Indication: DELUSION
     Route: 048
     Dates: start: 20030613, end: 20030613
  3. SEROQUEL [Suspect]
     Route: 048
     Dates: start: 20030614, end: 20030617
  4. SEROQUEL [Suspect]
     Route: 048
     Dates: start: 20030614, end: 20030617
  5. SEROQUEL [Suspect]
     Route: 048
     Dates: start: 20030618, end: 20030724
  6. SEROQUEL [Suspect]
     Route: 048
     Dates: start: 20030618, end: 20030724
  7. SEROQUEL [Suspect]
     Route: 048
     Dates: start: 20030725, end: 20031220
  8. SEROQUEL [Suspect]
     Route: 048
     Dates: start: 20030725, end: 20031220
  9. RISPERDAL [Concomitant]
     Dates: end: 20030613
  10. CELEXA [Concomitant]
     Dates: start: 20011207, end: 20020701
  11. NEPRO [Concomitant]
     Route: 048
  12. TYLENOL (CAPLET) [Concomitant]
  13. PHOSLO [Concomitant]
  14. PROTONIX [Concomitant]
  15. REGLAN [Concomitant]
  16. ARICEPT [Concomitant]
     Route: 048
  17. PAXIL [Concomitant]
     Route: 048
  18. NORVASC [Concomitant]
     Route: 048
  19. NPH INSULIN [Concomitant]
  20. HUMULIN 70/30 [Concomitant]
  21. DIGOXIN [Concomitant]
  22. MAVIK [Concomitant]
     Route: 048

REACTIONS (15)
  - ARTERIOVENOUS GRAFT THROMBOSIS [None]
  - BRADYCARDIA [None]
  - CARDIAC FAILURE CONGESTIVE [None]
  - CARDIO-RESPIRATORY ARREST [None]
  - COMA [None]
  - CONVULSION [None]
  - DECUBITUS ULCER [None]
  - GASTROINTESTINAL HAEMORRHAGE [None]
  - HYPOGLYCAEMIA [None]
  - IMPAIRED GASTRIC EMPTYING [None]
  - MALNUTRITION [None]
  - RENAL FAILURE CHRONIC [None]
  - RESPIRATORY FAILURE [None]
  - SEPSIS [None]
  - STAPHYLOCOCCAL INFECTION [None]
